FAERS Safety Report 6748544-1 (Version None)
Quarter: 2010Q2

REPORT INFORMATION
  Report Type: 
  Country: None (occurrence: None)
  Receive Date: 20100601
  Receipt Date: 20100524
  Transmission Date: 20101027
  Serious: Yes (Death, Other)
  Sender: FDA-Public Use
  Company Number: US-CELGENEUS-163-21880-10050534

PATIENT
  Sex: Male

DRUGS (9)
  1. REVLIMID [Suspect]
     Indication: MULTIPLE MYELOMA
     Route: 048
     Dates: start: 20100407, end: 20100408
  2. REVLIMID [Suspect]
     Route: 048
     Dates: start: 20100306, end: 20100317
  3. REVLIMID [Suspect]
     Route: 048
     Dates: start: 20100222
  4. THALOMID [Suspect]
     Indication: MULTIPLE MYELOMA
     Route: 048
     Dates: start: 20100416, end: 20100426
  5. DEXAMETHASONE [Concomitant]
     Indication: MULTIPLE MYELOMA
     Route: 051
     Dates: start: 20090903, end: 20100421
  6. ZOMETA [Concomitant]
     Indication: MULTIPLE MYELOMA
     Route: 051
     Dates: start: 20091019, end: 20100121
  7. VELCADE [Concomitant]
     Indication: MULTIPLE MYELOMA
     Route: 051
     Dates: end: 20100421
  8. ASPIRIN [Concomitant]
     Indication: DRUG USE FOR UNKNOWN INDICATION
     Route: 048
     Dates: start: 20090901, end: 20100425
  9. BENADRYL [Concomitant]
     Indication: PRURITUS
     Route: 048

REACTIONS (3)
  - LEUKOCYTOCLASTIC VASCULITIS [None]
  - MULTIPLE MYELOMA [None]
  - RENAL FAILURE [None]
